FAERS Safety Report 15448939 (Version 5)
Quarter: 2019Q1

REPORT INFORMATION
  Report Type: Spontaneous
  Country: US (occurrence: US)
  Receive Date: 20180930
  Receipt Date: 20190128
  Transmission Date: 20190417
  Serious: Yes (Other)
  Sender: FDA-Public Use
  Company Number: US-JNJFOC-20180534711

PATIENT
  Sex: Female
  Weight: 55 kg

DRUGS (9)
  1. IMBRUVICA [Suspect]
     Active Substance: IBRUTINIB
     Indication: CHRONIC LYMPHOCYTIC LEUKAEMIA
     Route: 048
     Dates: start: 20180503
  2. BACTRIM [Concomitant]
     Active Substance: SULFAMETHOXAZOLE\TRIMETHOPRIM
     Indication: PROPHYLAXIS
     Dosage: THREE TIMES A WEEK
     Route: 048
  3. IMBRUVICA [Suspect]
     Active Substance: IBRUTINIB
     Indication: CHRONIC LYMPHOCYTIC LEUKAEMIA
     Route: 048
     Dates: start: 201805
  4. ATENOLOL. [Concomitant]
     Active Substance: ATENOLOL
     Indication: HYPERTENSION
     Dosage: 25 MG, Q AM
     Route: 048
  5. AMLODIPINE [Concomitant]
     Active Substance: AMLODIPINE BESYLATE
     Indication: HYPERTENSION
     Dosage: 2.5 MG, QHS
     Route: 048
  6. LUTEIN [Concomitant]
     Active Substance: LUTEIN
     Indication: EYE DISORDER
  7. IMBRUVICA [Suspect]
     Active Substance: IBRUTINIB
     Indication: CHRONIC LYMPHOCYTIC LEUKAEMIA
     Route: 048
     Dates: start: 201806, end: 20181013
  8. IMBRUVICA [Concomitant]
     Active Substance: IBRUTINIB
     Indication: CHRONIC LYMPHOCYTIC LEUKAEMIA
     Route: 065
     Dates: start: 20161009, end: 20180502
  9. ACYCLOVIR. [Concomitant]
     Active Substance: ACYCLOVIR
     Indication: PROPHYLAXIS
     Route: 048

REACTIONS (18)
  - Arthralgia [Unknown]
  - Erythema [Unknown]
  - Asthenia [Unknown]
  - Gastrooesophageal reflux disease [Recovered/Resolved]
  - Decreased appetite [Unknown]
  - Feeling abnormal [Recovered/Resolved]
  - Pollakiuria [Unknown]
  - Dyspepsia [Not Recovered/Not Resolved]
  - Flatulence [Unknown]
  - Atrial fibrillation [Recovering/Resolving]
  - Cataract [Not Recovered/Not Resolved]
  - Hypoacusis [Recovering/Resolving]
  - Blood pressure increased [Unknown]
  - Muscle spasms [Unknown]
  - Petechiae [Unknown]
  - Contusion [Not Recovered/Not Resolved]
  - Fatigue [Not Recovered/Not Resolved]
  - Infrequent bowel movements [Unknown]

NARRATIVE: CASE EVENT DATE: 2018
